FAERS Safety Report 5634104-2 (Version None)
Quarter: 2008Q1

REPORT INFORMATION
  Report Type: 
  Country: None (occurrence: None)
  Receive Date: 20080131
  Receipt Date: 20071214
  Transmission Date: 20080703
  Serious: No
  Sender: FDA-Public Use
  Company Number: PHEH2007US15927

PATIENT
  Sex: Female

DRUGS (2)
  1. TEKTURNA [Suspect]
  2. COZAAR [Concomitant]

REACTIONS (1)
  - MUSCLE SPASMS [None]
